FAERS Safety Report 7414218-7 (Version None)
Quarter: 2011Q2

REPORT INFORMATION
  Report Type: 
  Country: None (occurrence: None)
  Receive Date: 20110414
  Receipt Date: 20110407
  Transmission Date: 20111010
  Serious: Yes (Hospitalization)
  Sender: FDA-Public Use
  Company Number: FR-PFIZER INC-2011076866

PATIENT
  Age: 45 Year
  Sex: Male

DRUGS (5)
  1. TAZOCILLINE [Suspect]
     Dosage: UNK
     Route: 042
     Dates: start: 20100303, end: 20100310
  2. CIFLOX [Concomitant]
     Dosage: UNK
     Route: 042
     Dates: start: 20100228, end: 20100309
  3. VANCOMYCIN HCL [Suspect]
     Dosage: UNK
     Route: 042
     Dates: start: 20100203, end: 20100306
  4. ZYVOX [Concomitant]
     Dosage: UNK
     Route: 042
     Dates: start: 20100205, end: 20100223
  5. FOSFOCINE [Suspect]
     Dosage: UNK
     Route: 042
     Dates: start: 20100223, end: 20100312

REACTIONS (8)
  - HYPERTHERMIA [None]
  - OEDEMA PERIPHERAL [None]
  - SKIN EXFOLIATION [None]
  - LIP ULCERATION [None]
  - RENAL FAILURE [None]
  - EOSINOPHILIA [None]
  - CONJUNCTIVITIS [None]
  - RASH MACULO-PAPULAR [None]
